FAERS Safety Report 4873399-X (Version None)
Quarter: 2005Q4

REPORT INFORMATION
  Report Type: 
  Country: None (occurrence: None)
  Receive Date: 20051201
  Receipt Date: 20050708
  Transmission Date: 20060501
  Serious: No
  Sender: FDA-Public Use
  Company Number: 2005PV000307

PATIENT
  Age: 36 Year
  Sex: Female
  Weight: 120.2032 kg

DRUGS (4)
  1. BYETTA [Suspect]
     Indication: DIABETES MELLITUS NON-INSULIN-DEPENDENT
     Dosage: 5 UG;BID;SC
     Route: 058
     Dates: start: 20050624
  2. ACTOS [Concomitant]
  3. LEVOXYL [Concomitant]
  4. GLUCOVANCE [Concomitant]

REACTIONS (7)
  - ASTHENIA [None]
  - BONE PAIN [None]
  - DIARRHOEA [None]
  - FATIGUE [None]
  - FEELING DRUNK [None]
  - NAUSEA [None]
  - WEIGHT DECREASED [None]
